FAERS Safety Report 23957254 (Version 3)
Quarter: 2024Q4

REPORT INFORMATION
  Report Type: Spontaneous
  Country: CO (occurrence: CO)
  Receive Date: 20240610
  Receipt Date: 20241210
  Transmission Date: 20250115
  Serious: Yes (Hospitalization)
  Sender: REGENERON
  Company Number: CO-SA-SAC20240606001155

PATIENT
  Age: 59 Year
  Sex: Female

DRUGS (1)
  1. PRALUENT [Suspect]
     Active Substance: ALIROCUMAB
     Indication: Type IIa hyperlipidaemia
     Dosage: 75 MG, Q15D
     Route: 058

REACTIONS (5)
  - Inflammation [Unknown]
  - Memory impairment [Unknown]
  - Dizziness [Recovered/Resolved]
  - Glycosylated haemoglobin increased [Recovered/Resolved]
  - Blood urine present [Recovered/Resolved]

NARRATIVE: CASE EVENT DATE: 20240401
